FAERS Safety Report 25374680 (Version 1)
Quarter: 2025Q2

REPORT INFORMATION
  Report Type: Spontaneous
  Country: TW (occurrence: TW)
  Receive Date: 20250529
  Receipt Date: 20250529
  Transmission Date: 20250716
  Serious: Yes (Hospitalization)
  Sender: PFIZER
  Company Number: TW-PFIZER INC-PV202500064395

PATIENT
  Sex: Female

DRUGS (1)
  1. XELJANZ XR [Suspect]
     Active Substance: TOFACITINIB CITRATE
     Indication: Rheumatoid arthritis
     Dosage: 11 MG, 1X/DAY
     Route: 048
     Dates: start: 20210424, end: 20250528

REACTIONS (3)
  - Angina pectoris [Recovered/Resolved]
  - Chest discomfort [Recovered/Resolved]
  - Heart rate increased [Recovered/Resolved]

NARRATIVE: CASE EVENT DATE: 20250423
